FAERS Safety Report 17546849 (Version 1)
Quarter: 2020Q1

REPORT INFORMATION
  Report Type: Spontaneous
  Country: US (occurrence: US)
  Receive Date: 20200306
  Receipt Date: 20200306
  Transmission Date: 20200409
  Serious: Yes (Hospitalization)
  Sender: FDA-Public Use
  Company Number: None

PATIENT
  Age: 54 Year
  Sex: Female
  Weight: 104 kg

DRUGS (1)
  1. KETOROLAC TROMETHAMINE (KETOROLAC TROMETHAMINE 30MG/ML INJ) [Suspect]
     Active Substance: KETOROLAC TROMETHAMINE
     Indication: PAIN
     Route: 030
     Dates: start: 20200301, end: 20200301

REACTIONS (8)
  - Dysgeusia [None]
  - Anaphylactic reaction [None]
  - Rash [None]
  - Nausea [None]
  - Pain in extremity [None]
  - Lethargy [None]
  - Paraesthesia oral [None]
  - Blood pressure decreased [None]

NARRATIVE: CASE EVENT DATE: 20200301
